FAERS Safety Report 7655254-5 (Version None)
Quarter: 2011Q3

REPORT INFORMATION
  Report Type: 
  Country: None (occurrence: None)
  Receive Date: 20110804
  Receipt Date: 20110728
  Transmission Date: 20111222
  Serious: Yes (Other)
  Sender: FDA-Public Use
  Company Number: US-JNJFOC-20110800102

PATIENT
  Age: 84 Year
  Sex: Female
  Weight: 56.25 kg

DRUGS (11)
  1. IMODIUM MULTI-SYMPTOM RELIEF [Suspect]
     Dosage: 1 CAPLET 2 TIMES IN A DAY
     Route: 048
     Dates: start: 20110601
  2. COUMADIN [Suspect]
     Indication: ANTICOAGULANT THERAPY
     Dosage: SINCE 2004-2005
     Route: 065
  3. SIMVASTATIN [Concomitant]
     Indication: BLOOD CHOLESTEROL INCREASED
     Dosage: SINCE YEARS
     Route: 065
  4. LISINOPRIL [Concomitant]
     Indication: HYPERTENSION
     Dosage: OVER YEAR
     Route: 065
  5. SYNTHROID [Concomitant]
     Indication: THYROID DISORDER
     Route: 065
  6. OXYCODONE HCL [Concomitant]
     Indication: PAIN
     Dosage: 1/4 TABLET AS NEEDED
     Route: 065
  7. IMODIUM MULTI-SYMPTOM RELIEF [Suspect]
     Indication: DIVERTICULITIS
     Dosage: 1/2 CAPLET ONCE A DAY
     Route: 048
     Dates: start: 19910101, end: 20110601
  8. IMODIUM MULTI-SYMPTOM RELIEF [Suspect]
     Dosage: 1 CAPLET 2 TIMES IN A DAY
     Route: 048
     Dates: start: 20110601
  9. RYTHMOL [Concomitant]
     Indication: HEART RATE IRREGULAR
     Route: 065
     Dates: start: 20060101
  10. ANTIVERT [Concomitant]
     Indication: DIZZINESS
     Dosage: SINCE 1-2 YEARS
     Route: 065
  11. IMODIUM MULTI-SYMPTOM RELIEF [Suspect]
     Indication: DIVERTICULUM
     Dosage: 1/2 CAPLET ONCE A DAY
     Route: 048
     Dates: start: 19910101, end: 20110601

REACTIONS (1)
  - INTERNATIONAL NORMALISED RATIO INCREASED [None]
